FAERS Safety Report 9843510 (Version 1)
Quarter: 2013Q4

REPORT INFORMATION
  Report Type: Spontaneous
  Country: US (occurrence: None)
  Receive Date: 20131219
  Receipt Date: 20131219
  Transmission Date: 20140711
  Serious: Yes (Other)
  Sender: FDA-Public Use
  Company Number: 163-20785-12090240

PATIENT
  Age: 56 Year
  Sex: Male
  Weight: 95.26 kg

DRUGS (18)
  1. THALOMID (THALIDOMIDE) (CAPSULES) [Suspect]
     Indication: PLASMA CELL MYELOMA
     Dosage: 100 MG, 1 IN 1 D, PO  07/09/2012- UNKNOWN THERAPY DATES
     Route: 048
     Dates: start: 20120709
  2. ASPIRIN (ACETYLSALICYLIC ACID) [Concomitant]
  3. TYLENOL + CODEINE (PANADEINE CO) [Concomitant]
  4. ATIVAN (LORAZEPAM) (UNKNOWN) [Concomitant]
  5. CIPRO (CIPROFLOXACIN) (UNKNOWN) [Concomitant]
  6. DEXAMETHASONE (DEXAMETHASONE) (UNKNOWN) [Concomitant]
  7. MULTIVITAMINS (MULTIVITAMINS) (UNKNOWN) [Concomitant]
  8. PROTONIX (UNKNOWN) [Concomitant]
  9. ULTRAM (TRAMADOL HYDROCHLORIDE) (UNKNOWN) [Concomitant]
  10. VALTREX (VALACICLOVIR HYDROCHLORIDE) (UNKNOWN) [Concomitant]
  11. VELCADE (BORTEZOMIB) (UNKNOWN) [Concomitant]
  12. PROCHLORPERAZINE (PROCHLORPERADINE) (UNKNOWN) [Concomitant]
  13. COLACE [Concomitant]
  14. SENOKOT (SENNA FRUIT) (UNKNOWN) [Concomitant]
  15. ZOMETA (ZOLEDRONIC ACID) (UNKNOWN) [Concomitant]
  16. KYPROLIS (CARFILZOMIB) (UNKNOWN) [Concomitant]
  17. ASA (ACETYLSALICYLIC ACID) (UNKNOWN) [Concomitant]
  18. ZOFRAN (ONDANSETRON HYDROCHLORIDE) (UNKNOWN) [Concomitant]

REACTIONS (10)
  - Tooth fracture [None]
  - Tremor [None]
  - Fatigue [None]
  - Constipation [None]
  - Rash [None]
  - Rash [None]
  - Rash pruritic [None]
  - Neuropathy peripheral [None]
  - Headache [None]
  - Muscle spasms [None]
